FAERS Safety Report 5148707-5 (Version None)
Quarter: 2006Q4

REPORT INFORMATION
  Report Type: 
  Country: None (occurrence: None)
  Receive Date: 20061112
  Receipt Date: 20061030
  Transmission Date: 20070319
  Serious: Yes (Hospitalization, Other)
  Sender: FDA-Public Use
  Company Number: JP-NOVOPROD-258182

PATIENT
  Age: 75 Year
  Sex: Male

DRUGS (5)
  1. GLUCAGON [Suspect]
     Indication: GASTROINTESTINAL ENDOSCOPIC THERAPY
     Dosage: 1 MG, UNK
     Route: 042
     Dates: start: 20061030, end: 20061030
  2. FAMOTIDINE [Concomitant]
  3. PRAVASTATIN SODIUM [Concomitant]
  4. IMIDAPRIL HYDROCHLORIDE [Concomitant]
  5. SODIUM CITRATE [Concomitant]

REACTIONS (4)
  - BLOOD GLUCOSE DECREASED [None]
  - BRADYCARDIA [None]
  - HYPERTENSION [None]
  - LOSS OF CONSCIOUSNESS [None]
